FAERS Safety Report 9881894 (Version 2)
Quarter: 2014Q1

REPORT INFORMATION
  Report Type: Spontaneous
  Country: US (occurrence: US)
  Receive Date: 20140207
  Receipt Date: 20140317
  Transmission Date: 20141002
  Serious: Yes (Hospitalization, Other)
  Sender: FDA-Public Use
  Company Number: US-PFIZER INC-2014029923

PATIENT
  Sex: Male

DRUGS (2)
  1. ROBITUSSIN PEAK COLD MAXIMUM STRENGTH COUGH PLUS CHEST CONGESTION DM [Suspect]
     Indication: NASOPHARYNGITIS
     Dosage: UNK
  2. ROBITUSSIN PEAK COLD MAXIMUM STRENGTH COUGH PLUS CHEST CONGESTION DM [Suspect]
     Indication: COUGH

REACTIONS (9)
  - Poor quality drug administered [Unknown]
  - Haematochezia [Unknown]
  - Intestinal haemorrhage [Unknown]
  - Diarrhoea [Unknown]
  - Abdominal pain [Unknown]
  - Flatulence [Unknown]
  - Abdominal distension [Unknown]
  - Liquid product physical issue [Unknown]
  - Faeces discoloured [Unknown]
